FAERS Safety Report 6315307-0 (Version None)
Quarter: 2009Q3

REPORT INFORMATION
  Report Type: 
  Country: None (occurrence: None)
  Receive Date: 20090819
  Receipt Date: 20020313
  Transmission Date: 20100115
  Serious: No
  Sender: FDA-Public Use
  Company Number: US-BRISTOL-MYERS SQUIBB COMPANY-11773355

PATIENT
  Sex: Female

DRUGS (1)
  1. MAXIPIME [Suspect]

REACTIONS (2)
  - PREGNANCY [None]
  - PREMATURE BABY [None]
